FAERS Safety Report 5084001-9 (Version None)
Quarter: 2006Q3

REPORT INFORMATION
  Report Type: 
  Country: None (occurrence: None)
  Receive Date: 20060814
  Receipt Date: 20060807
  Transmission Date: 20061208
  Serious: Yes (Death, Life-Threatening, Other)
  Sender: FDA-Public Use
  Company Number: 2006S1000156

PATIENT
  Age: 3 Day
  Sex: Female

DRUGS (9)
  1. INOMAX [Suspect]
     Indication: LUNG DISORDER
     Dosage: PPM; CONT, INH
     Route: 055
     Dates: start: 20060802, end: 20060805
  2. INOMAX [Suspect]
     Indication: PROPHYLAXIS
     Dosage: PPM; CONT, INH
     Route: 055
     Dates: start: 20060802, end: 20060805
  3. HYDROCORTISONE [Concomitant]
  4. DOPAMINE HCL [Concomitant]
  5. FENTANYL [Concomitant]
  6. INSULIN [Concomitant]
  7. VECURONIUM (VECURONIUM) [Concomitant]
  8. DOBUTAMINE (DOBUTAMINE) [Concomitant]
  9. NORADRENALINE (NOREPINEPHRINE) [Concomitant]

REACTIONS (3)
  - CARDIAC ARREST NEONATAL [None]
  - DEATH NEONATAL [None]
  - NEONATAL HYPOTENSION [None]
